FAERS Safety Report 24083738 (Version 1)
Quarter: 2024Q3

REPORT INFORMATION
  Report Type: Spontaneous
  Country: US (occurrence: None)
  Receive Date: 20240712
  Receipt Date: 20240712
  Transmission Date: 20241016
  Serious: Yes (Other)
  Sender: Public
  Company Number: None

PATIENT
  Age: 20 Year
  Sex: Male

DRUGS (4)
  1. .DELTA.8-TETRAHYDROCANNABINOL\HERBALS [Suspect]
     Active Substance: .DELTA.8-TETRAHYDROCANNABINOL\HERBALS
  2. CANNABIDIOL\HERBALS [Suspect]
     Active Substance: CANNABIDIOL\HERBALS
     Dosage: FREQUENCY : DAILY;?
  3. LEXAPRO [Concomitant]
     Active Substance: ESCITALOPRAM OXALATE
  4. VITAMINS [Concomitant]
     Active Substance: VITAMINS

REACTIONS (10)
  - Cannabinoid hyperemesis syndrome [None]
  - Gait disturbance [None]
  - Hypoacusis [None]
  - Temperature regulation disorder [None]
  - Heart rate increased [None]
  - Diarrhoea [None]
  - Dehydration [None]
  - Decreased appetite [None]
  - Communication disorder [None]
  - Blood urine present [None]

NARRATIVE: CASE EVENT DATE: 20240601
